FAERS Safety Report 13190265 (Version 1)
Quarter: 2017Q1

REPORT INFORMATION
  Report Type: Spontaneous
  Country: MX (occurrence: MX)
  Receive Date: 20170206
  Receipt Date: 20170206
  Transmission Date: 20170428
  Serious: Yes (Other)
  Sender: FDA-Public Use
  Company Number: MX-PFIZER INC-2017046874

PATIENT
  Age: 90 Year
  Sex: Female

DRUGS (3)
  1. TAFIL /00595201/ [Concomitant]
     Indication: INSOMNIA
     Dosage: UNK
  2. DETRUSITOL [Suspect]
     Active Substance: TOLTERODINE TARTRATE
     Dosage: UNK
  3. HALCION [Concomitant]
     Active Substance: TRIAZOLAM
     Dosage: UNK

REACTIONS (1)
  - Senile dementia [Not Recovered/Not Resolved]
